FAERS Safety Report 7403780-6 (Version None)
Quarter: 2011Q2

REPORT INFORMATION
  Report Type: 
  Country: None (occurrence: None)
  Receive Date: 20110408
  Receipt Date: 20110405
  Transmission Date: 20111010
  Serious: Yes (Hospitalization)
  Sender: FDA-Public Use
  Company Number: US-ABBOTT-11P-163-0716900-00

PATIENT
  Age: 59 Year
  Sex: Female
  Weight: 65.83 kg

DRUGS (2)
  1. HUMIRA [Suspect]
     Indication: CROHN'S DISEASE
  2. HUMIRA [Suspect]
     Indication: ANKYLOSING SPONDYLITIS
     Dates: start: 20080101, end: 20101001

REACTIONS (5)
  - DIVERTICULAR PERFORATION [None]
  - COLOSTOMY [None]
  - COLOSTOMY CLOSURE [None]
  - POSTOPERATIVE WOUND INFECTION [None]
  - INCISIONAL HERNIA [None]
